FAERS Safety Report 8402816-3 (Version None)
Quarter: 2012Q2

REPORT INFORMATION
  Report Type: 
  Country: None (occurrence: None)
  Receive Date: 20120601
  Receipt Date: 20120502
  Transmission Date: 20120825
  Serious: No
  Sender: FDA-Public Use
  Company Number: US-BAYER-2012-043523

PATIENT

DRUGS (4)
  1. ALEVE (CAPLET) [Suspect]
     Route: 048
  2. ASPIRIN [Suspect]
  3. PREDNISONE TAB [Concomitant]
  4. MOBIC [Concomitant]

REACTIONS (1)
  - NO ADVERSE EVENT [None]
